FAERS Safety Report 10870406 (Version 3)
Quarter: 2017Q2

REPORT INFORMATION
  Report Type: Spontaneous
  Country: BF (occurrence: BF)
  Receive Date: 20150226
  Receipt Date: 20170515
  Transmission Date: 20170829
  Serious: Yes (Hospitalization, Other)
  Sender: FDA-Public Use
  Company Number: BF-SA-2015SA015698

PATIENT
  Age: 35 Year
  Sex: Female

DRUGS (8)
  1. AMIODARONE [Suspect]
     Active Substance: AMIODARONE
     Indication: VENTRICULAR TACHYCARDIA
     Route: 065
     Dates: start: 20111123
  2. ACEBUTOLOL HYDROCHLORIDE. [Suspect]
     Active Substance: ACEBUTOLOL HYDROCHLORIDE
     Indication: VENTRICULAR TACHYCARDIA
     Route: 065
  3. ATENOLOL. [Suspect]
     Active Substance: ATENOLOL
     Indication: VENTRICULAR TACHYCARDIA
     Route: 065
  4. ATENOLOL. [Suspect]
     Active Substance: ATENOLOL
     Indication: VENTRICULAR TACHYCARDIA
     Dosage: 50 MG AND 100 MG
     Route: 065
  5. NADOLOL. [Suspect]
     Active Substance: NADOLOL
     Indication: VENTRICULAR TACHYCARDIA
     Route: 065
  6. FLECAINIDE [Suspect]
     Active Substance: FLECAINIDE
     Indication: VENTRICULAR TACHYCARDIA
     Route: 065
  7. ATENOLOL. [Suspect]
     Active Substance: ATENOLOL
     Indication: VENTRICULAR TACHYCARDIA
     Route: 065
     Dates: start: 2011
  8. ENOXAPARIN SODIUM. [Suspect]
     Active Substance: ENOXAPARIN SODIUM
     Indication: THROMBOSIS PROPHYLAXIS
     Route: 065

REACTIONS (9)
  - Presyncope [Recovered/Resolved]
  - Palpitations [Recovered/Resolved]
  - Chest discomfort [Recovered/Resolved]
  - Dizziness [Recovered/Resolved]
  - Anxiety [Recovered/Resolved]
  - Discomfort [Recovered/Resolved]
  - Maternal exposure during pregnancy [Unknown]
  - Ventricular tachycardia [Recovered/Resolved]
  - Vision blurred [Unknown]

NARRATIVE: CASE EVENT DATE: 20120125
